FAERS Safety Report 21393015 (Version 1)
Quarter: 2022Q3

REPORT INFORMATION
  Report Type: Spontaneous
  Country: US (occurrence: US)
  Receive Date: 20220929
  Receipt Date: 20220929
  Transmission Date: 20221027
  Serious: Yes (Other)
  Sender: FDA-Public Use
  Company Number: US-BRISTOL-MYERS SQUIBB COMPANY-2022-111547

PATIENT
  Age: 76 Year
  Sex: Male
  Weight: 108.86 kg

DRUGS (14)
  1. ELIQUIS [Interacting]
     Active Substance: APIXABAN
     Indication: Pulmonary embolism
     Route: 048
     Dates: start: 20211225, end: 20220103
  2. ELIQUIS [Interacting]
     Active Substance: APIXABAN
     Route: 048
     Dates: start: 20220104, end: 2022
  3. ELIQUIS [Interacting]
     Active Substance: APIXABAN
     Route: 048
     Dates: start: 2022, end: 2022
  4. ELIQUIS [Interacting]
     Active Substance: APIXABAN
     Route: 048
     Dates: start: 2022, end: 202207
  5. ELIQUIS [Interacting]
     Active Substance: APIXABAN
     Route: 048
     Dates: start: 202207
  6. PAXLOVID [Interacting]
     Active Substance: NIRMATRELVIR\RITONAVIR
     Indication: COVID-19
     Route: 065
     Dates: start: 2022, end: 2022
  7. LISINOPRIL [Concomitant]
     Active Substance: LISINOPRIL
     Indication: Product used for unknown indication
     Route: 065
  8. Covid vaccines [Concomitant]
     Indication: Product used for unknown indication
     Dosage: X3 DOSES PRIOR TO GETTING COVID
     Route: 065
  9. METFORMIN [Concomitant]
     Active Substance: METFORMIN HYDROCHLORIDE
     Indication: Diabetes prophylaxis
     Route: 065
  10. ATORVASTATIN [Concomitant]
     Active Substance: ATORVASTATIN
     Indication: Coronary arterial stent insertion
     Route: 065
  11. ATORVASTATIN [Concomitant]
     Active Substance: ATORVASTATIN
     Indication: Arterial disorder
  12. UNSPECIFIED INGREDIENT [Concomitant]
     Active Substance: UNSPECIFIED INGREDIENT
     Indication: Product used for unknown indication
     Route: 065
  13. UNSPECIFIED INGREDIENT [Concomitant]
     Active Substance: UNSPECIFIED INGREDIENT
     Indication: Product used for unknown indication
     Route: 065
  14. POTASSIUM [Concomitant]
     Active Substance: POTASSIUM
     Indication: Product used for unknown indication
     Route: 065

REACTIONS (4)
  - COVID-19 [Recovered/Resolved]
  - Labelled drug-drug interaction medication error [Unknown]
  - Osteofibroma [Unknown]
  - Intentional product use issue [Unknown]

NARRATIVE: CASE EVENT DATE: 20211225
